FAERS Safety Report 17133180 (Version 1)
Quarter: 2019Q4

REPORT INFORMATION
  Report Type: Spontaneous
  Country: US (occurrence: US)
  Receive Date: 20191210
  Receipt Date: 20191210
  Transmission Date: 20200122
  Serious: Yes (Other)
  Sender: FDA-Public Use
  Company Number: US-DRREDDYS-USA/USA/19/0116937

PATIENT
  Sex: Female

DRUGS (2)
  1. PREGABALIN. [Suspect]
     Active Substance: PREGABALIN
     Indication: SPINAL CORD INJURY
  2. PREGABALIN. [Suspect]
     Active Substance: PREGABALIN
     Indication: NERVE INJURY
     Route: 048

REACTIONS (9)
  - Anxiety [Not Recovered/Not Resolved]
  - Spinal pain [Unknown]
  - Colitis [Unknown]
  - Pain in extremity [Unknown]
  - Herpes zoster [Unknown]
  - Product substitution issue [Unknown]
  - Haematochezia [Not Recovered/Not Resolved]
  - Post-traumatic stress disorder [Unknown]
  - Dizziness [Unknown]
